FAERS Safety Report 26217555 (Version 1)
Quarter: 2025Q4

REPORT INFORMATION
  Report Type: Spontaneous
  Country: US (occurrence: US)
  Receive Date: 20251231
  Receipt Date: 20251231
  Transmission Date: 20260117
  Serious: No
  Sender: Kenvue
  Company Number: US-KENVUE-20251202971

PATIENT

DRUGS (1)
  1. MENS ROGAINE EXTRA STRENGTH [Suspect]
     Active Substance: MINOXIDIL
     Indication: Product used for unknown indication
     Route: 048

REACTIONS (5)
  - Application site dryness [Unknown]
  - Application site irritation [Unknown]
  - Application site erythema [Unknown]
  - Application site pain [Unknown]
  - Suspected counterfeit product [Unknown]
